FAERS Safety Report 11615221 (Version 2)
Quarter: 2015Q4

REPORT INFORMATION
  Report Type: Spontaneous
  Country: US (occurrence: US)
  Receive Date: 20151009
  Receipt Date: 20151102
  Transmission Date: 20160304
  Serious: No
  Sender: FDA-Public Use
  Company Number: US-PFIZER INC-2015335121

PATIENT
  Sex: Female

DRUGS (11)
  1. HUMIRA [Suspect]
     Active Substance: ADALIMUMAB
  2. REMICADE [Suspect]
     Active Substance: INFLIXIMAB
  3. DOXYCYCLINE CALCIUM [Suspect]
     Active Substance: DOXYCYCLINE CALCIUM
  4. SULFASALAZINE. [Suspect]
     Active Substance: SULFASALAZINE
  5. OMEPRAZOLE. [Suspect]
     Active Substance: OMEPRAZOLE
  6. AUGMENTIN [Suspect]
     Active Substance: AMOXICILLIN\CLAVULANATE POTASSIUM
  7. CEFACLOR. [Suspect]
     Active Substance: CEFACLOR
  8. MORPHINE SULFATE. [Suspect]
     Active Substance: MORPHINE SULFATE
     Dosage: UNK
  9. AZATHIOPRINE. [Suspect]
     Active Substance: AZATHIOPRINE
  10. KETOROLAC [Suspect]
     Active Substance: KETOROLAC\KETOROLAC TROMETHAMINE
  11. PERCOCET [Suspect]
     Active Substance: ACETAMINOPHEN\OXYCODONE HYDROCHLORIDE

REACTIONS (1)
  - Drug hypersensitivity [Unknown]
